FAERS Safety Report 6801144-7 (Version None)
Quarter: 2010Q2

REPORT INFORMATION
  Report Type: 
  Country: None (occurrence: None)
  Receive Date: 20100629
  Receipt Date: 20100617
  Transmission Date: 20101027
  Serious: Yes (Hospitalization, Other)
  Sender: FDA-Public Use
  Company Number: US-PFIZER INC-2010076944

PATIENT
  Sex: Female
  Weight: 68 kg

DRUGS (2)
  1. NARDIL [Suspect]
     Indication: PANIC ATTACK
     Dosage: 15 MG, 2X/DAY
     Route: 048
     Dates: start: 19790701, end: 20100514
  2. NARDIL [Suspect]
     Indication: DEPRESSION

REACTIONS (4)
  - ARRHYTHMIA [None]
  - ATRIOVENTRICULAR BLOCK SECOND DEGREE [None]
  - HYPERTENSIVE CRISIS [None]
  - INSOMNIA [None]
